FAERS Safety Report 7596577-8 (Version None)
Quarter: 2011Q3

REPORT INFORMATION
  Report Type: 
  Country: None (occurrence: None)
  Receive Date: 20110708
  Receipt Date: 20110701
  Transmission Date: 20111222
  Serious: Yes (Other)
  Sender: FDA-Public Use
  Company Number: DE-AMGEN-DEUSP2011034220

PATIENT
  Age: 65 Year
  Sex: Male

DRUGS (3)
  1. GLUCOCORTICOIDS [Concomitant]
     Dosage: 5 MG, UNKNOWN
  2. ENBREL [Suspect]
     Indication: PSORIATIC ARTHROPATHY
     Dosage: 50 MG, WEEKLY
     Dates: start: 20100701
  3. TRENTAL [Concomitant]
     Dosage: 400 MG, UNK

REACTIONS (1)
  - CARDIAC DISORDER [None]
